FAERS Safety Report 4679670-9 (Version None)
Quarter: 2005Q2

REPORT INFORMATION
  Report Type: 
  Country: None (occurrence: None)
  Receive Date: 20050602
  Receipt Date: 20050524
  Transmission Date: 20051028
  Serious: Yes (Other)
  Sender: FDA-Public Use
  Company Number: NL-BRISTOL-MYERS SQUIBB COMPANY-12980132

PATIENT
  Sex: Female

DRUGS (4)
  1. KENACORT [Suspect]
     Indication: PERIARTHRITIS
     Route: 014
  2. LIDOCAINE [Suspect]
  3. AVONEX [Concomitant]
  4. IBUPROFEN [Concomitant]
     Indication: PAIN

REACTIONS (3)
  - ACCIDENTAL OVERDOSE [None]
  - BALANCE DISORDER [None]
  - DIZZINESS [None]
